FAERS Safety Report 19794344 (Version 1)
Quarter: 2021Q3

REPORT INFORMATION
  Report Type: Spontaneous
  Country: IN (occurrence: IN)
  Receive Date: 20210906
  Receipt Date: 20210906
  Transmission Date: 20211014
  Serious: Yes (Other)
  Sender: FDA-Public Use
  Company Number: IN-LUPIN PHARMACEUTICALS INC.-2021-16473

PATIENT
  Age: 3 Decade
  Sex: Male

DRUGS (2)
  1. VANCOMYCIN [Suspect]
     Active Substance: VANCOMYCIN
     Indication: ALPHA HAEMOLYTIC STREPTOCOCCAL INFECTION
  2. VANCOMYCIN [Suspect]
     Active Substance: VANCOMYCIN
     Indication: STREPTOCOCCAL ENDOCARDITIS
     Dosage: 500 MILLIGRAM, INFUSION
     Route: 065

REACTIONS (1)
  - Infusion related reaction [Unknown]
